FAERS Safety Report 18370361 (Version 2)
Quarter: 2020Q4

REPORT INFORMATION
  Report Type: Other
  Country: FR (occurrence: FR)
  Receive Date: 20201012
  Receipt Date: 20201014
  Transmission Date: 20210114
  Serious: Yes (Other)
  Sender: FDA-Public Use
  Company Number: FR-ASTELLAS-2020US035179

PATIENT
  Age: 24 Year
  Sex: Female

DRUGS (15)
  1. ADVAGRAF [Suspect]
     Active Substance: TACROLIMUS
     Indication: KIDNEY TRANSPLANT REJECTION
     Dosage: 60 MG, TOTAL
     Route: 048
     Dates: start: 20200918, end: 20200918
  2. CALCIDOSE [CALCIUM CARBONATE] [Concomitant]
     Active Substance: CALCIUM CARBONATE
     Indication: PRODUCT USED FOR UNKNOWN INDICATION
     Dosage: 2 DF, ONCE DAILY (2 SACHETS A 8H)
     Route: 065
  3. BACTRIM [Concomitant]
     Active Substance: SULFAMETHOXAZOLE\TRIMETHOPRIM
     Indication: PRODUCT USED FOR UNKNOWN INDICATION
     Dosage: 1 DF, THRICE WEEKLY (1 TABLET AT MIDDAY ON MONDAY, WEDNESDAY AND FRIDAY)
     Route: 065
  4. PRIMPERAN [Concomitant]
     Active Substance: METOCLOPRAMIDE HYDROCHLORIDE
     Indication: NAUSEA
     Route: 065
  5. KALINOR [CITRIC ACID;POTASSIUM BICARBONATE;POTASSIUM CITRATE] [Concomitant]
     Active Substance: CITRIC ACID MONOHYDRATE\POTASSIUM BICARBONATE\POTASSIUM CITRATE
     Indication: PRODUCT USED FOR UNKNOWN INDICATION
     Dosage: 5 MG, TWICE DAILY (1 TABLET IN THE MORNING AND 1 TABLET IN THE EVENING)
     Route: 048
  6. BICARBONATE SODIUM [Concomitant]
     Active Substance: SODIUM BICARBONATE
     Indication: PRODUCT USED FOR UNKNOWN INDICATION
     Dosage: 3 G, TWICE DAILY (1 IN THE MORNING AND 1 IN THE EVENING)
     Route: 065
  7. PREDNISONE. [Concomitant]
     Active Substance: PREDNISONE
     Indication: PRODUCT USED FOR UNKNOWN INDICATION
     Route: 065
  8. AMLODIPINE [Concomitant]
     Active Substance: AMLODIPINE BESYLATE
     Indication: PRODUCT USED FOR UNKNOWN INDICATION
     Dosage: 5 MG, ONCE DAILY (EVENINGS)
     Route: 065
  9. CELLCEPT [Concomitant]
     Active Substance: MYCOPHENOLATE MOFETIL\MYCOPHENOLATE MOFETIL HYDROCHLORIDE
     Indication: PRODUCT USED FOR UNKNOWN INDICATION
     Dosage: 2 DF, TWICE DAILY (2 TABLETS AT MIDDAY AND MIDNIGHT)
     Route: 065
  10. VALGANCICLOVIR. [Concomitant]
     Active Substance: VALGANCICLOVIR
     Indication: PRODUCT USED FOR UNKNOWN INDICATION
     Dosage: 450 MG, EVERY OTHER DAY (EVERY 48 HOURS)
     Route: 065
  11. ROCALTROL CHUGAI [Concomitant]
     Indication: PRODUCT USED FOR UNKNOWN INDICATION
     Dosage: 1 DF, ONCE DAILY (IN THE EVENING)
     Route: 065
  12. LAXIDO [Concomitant]
     Active Substance: POLYETHYLENE GLYCOL 3350\POTASSIUM CHLORIDE\SODIUM BICARBONATE\SODIUM CHLORIDE
     Indication: PRODUCT USED FOR UNKNOWN INDICATION
     Dosage: 1 DF (SACHET), ONCE DAILY MORNING
     Route: 048
  13. FOLAVIT [Concomitant]
     Active Substance: FOLIC ACID
     Indication: PRODUCT USED FOR UNKNOWN INDICATION
     Dosage: 1 DF, ONCE DAILY (MORNING)
     Route: 048
  14. NEORAL [Concomitant]
     Active Substance: CYCLOSPORINE
     Indication: PRODUCT USED FOR UNKNOWN INDICATION
     Dosage: 250 MG, TWICE DAILY (1 TABLET AT MIDDAY AND MIDNIGHT)
     Route: 065
  15. SELOZOK [Concomitant]
     Active Substance: METOPROLOL SUCCINATE
     Indication: PRODUCT USED FOR UNKNOWN INDICATION
     Dosage: 50 MG, ONCE DAILY (EVENINGS)
     Route: 065

REACTIONS (4)
  - Product prescribing error [Recovered/Resolved]
  - Headache [Recovered/Resolved]
  - Drug level above therapeutic [Recovered/Resolved]
  - Haematemesis [Recovered/Resolved]

NARRATIVE: CASE EVENT DATE: 20200918
